FAERS Safety Report 8170568-0 (Version None)
Quarter: 2012Q1

REPORT INFORMATION
  Report Type: 
  Country: None (occurrence: None)
  Receive Date: 20120104
  Receipt Date: 20110928
  Transmission Date: 20120608
  Serious: No
  Sender: FDA-Public Use
  Company Number: 2011HGS-002590

PATIENT
  Age: 33 Year
  Sex: Female
  Weight: 58.9676 kg

DRUGS (3)
  1. PREDNISONE TAB [Concomitant]
  2. BENLYSTA [Suspect]
     Indication: SYSTEMIC LUPUS ERYTHEMATOSUS
     Dosage: 10 MG/KG, 1 IN 2 WK, INTRAVENOUS DRIP
     Route: 041
     Dates: start: 20110920
  3. PLAQUENIL [Concomitant]

REACTIONS (1)
  - RASH [None]
